FAERS Safety Report 8792461 (Version 2)
Quarter: 2012Q4

REPORT INFORMATION
  Report Type: 
  Country: US (occurrence: US)
  Receive Date: 20120918
  Receipt Date: 20120928
  Transmission Date: 20130627
  Serious: Yes (Death, Hospitalization)
  Sender: FDA-Public Use
  Company Number: PHHY2012US080475

PATIENT
  Age: 16 Year
  Sex: Female

DRUGS (8)
  1. PREDNISONE [Suspect]
     Indication: SYSTEMIC LUPUS ERYTHEMATOSUS
     Dosage: 20 mg, UNK
  2. METHYLPREDNISOLONE [Suspect]
     Dosage: 25 mg, Q8H
     Route: 042
  3. METHYLPREDNISOLONE [Suspect]
     Dosage: 1000 mg, UNK
  4. METHYLPREDNISOLONE [Suspect]
     Dosage: 1 g, UNK
  5. METHYLPREDNISOLONE [Suspect]
     Dosage: 30 mg, Q8H
  6. IMURAN [Suspect]
     Dosage: 125 mg, UNK
  7. PLAQUENIL [Suspect]
     Dosage: 300 mg, UNK
  8. CYTOXAN [Suspect]
     Indication: NEUROPSYCHIATRIC LUPUS
     Dosage: 10 mg/kg, QW2
     Route: 042

REACTIONS (36)
  - Encephalitis [Fatal]
  - Headache [Fatal]
  - Nausea [Fatal]
  - Vomiting [Fatal]
  - Malaise [Fatal]
  - Mental status changes [Fatal]
  - Regressive behaviour [Fatal]
  - Convulsion [Fatal]
  - General physical health deterioration [Fatal]
  - Drooling [Fatal]
  - Hemiparesis [Fatal]
  - Photophobia [Fatal]
  - Clubbing [Fatal]
  - Capillary nail refill test abnormal [Fatal]
  - Pancytopenia [Fatal]
  - Encephalitic infection [Fatal]
  - Fungal infection [Fatal]
  - Brain oedema [Fatal]
  - Necrosis [Fatal]
  - Brain herniation [Fatal]
  - Aggression [Fatal]
  - Lymphopenia [Fatal]
  - Anaemia [Fatal]
  - Hyponatraemia [Fatal]
  - Disorientation [Fatal]
  - Unresponsive to stimuli [Fatal]
  - Ocular icterus [Unknown]
  - Rales [Unknown]
  - Atelectasis [Unknown]
  - Haemoptysis [Unknown]
  - Pharyngitis [Unknown]
  - Lupus vasculitis [Unknown]
  - Respiratory disorder [Unknown]
  - Lupus nephritis [Unknown]
  - Systemic lupus erythematosus [Unknown]
  - Pancreatitis [Unknown]
